FAERS Safety Report 4662650-7 (Version None)
Quarter: 2005Q2

REPORT INFORMATION
  Report Type: 
  Country: None (occurrence: None)
  Receive Date: 20050506
  Receipt Date: 20050105
  Transmission Date: 20051028
  Serious: Yes (Hospitalization)
  Sender: FDA-Public Use
  Company Number: 2005UW00192

PATIENT
  Age: 59 Year
  Sex: Male
  Weight: 86.182 kg

DRUGS (8)
  1. NEXIUM [Suspect]
     Indication: GASTROOESOPHAGEAL REFLUX DISEASE
     Dosage: 20 MG PO
     Route: 048
     Dates: start: 20041101
  2. NEXIUM [Suspect]
     Indication: GASTROOESOPHAGEAL REFLUX DISEASE
     Dosage: 40 MG PO
     Route: 048
  3. POTASSIUM CHLORIDE [Concomitant]
  4. ZESTRIL [Concomitant]
  5. NO MATCH [Concomitant]
  6. LIPITOR [Concomitant]
  7. INDAPAMIDE [Concomitant]
  8. ZANTAC [Concomitant]

REACTIONS (1)
  - ABDOMINAL PAIN UPPER [None]
